FAERS Safety Report 9744653 (Version 2)
Quarter: 2014Q1

REPORT INFORMATION
  Report Type: Spontaneous
  Country: JP (occurrence: JP)
  Receive Date: 20131210
  Receipt Date: 20140320
  Transmission Date: 20141002
  Serious: Yes (Hospitalization)
  Sender: FDA-Public Use
  Company Number: JP-ASTRAZENECA-2013SE89200

PATIENT
  Age: 83 Year
  Sex: Male
  Weight: 50 kg

DRUGS (5)
  1. CRESTOR [Suspect]
     Indication: DYSLIPIDAEMIA
     Route: 048
     Dates: start: 20130205, end: 20130429
  2. CRESTOR [Suspect]
     Indication: DYSLIPIDAEMIA
     Route: 048
     Dates: start: 20130404, end: 20130722
  3. PLAVIX [Suspect]
     Indication: MYOCARDIAL ISCHAEMIA
     Route: 048
     Dates: start: 20120907, end: 20130721
  4. OMEPRAL [Concomitant]
     Indication: PROPHYLAXIS AGAINST GASTROINTESTINAL ULCER
     Route: 048
     Dates: start: 20120907, end: 20130721
  5. ACECOL [Concomitant]
     Indication: HYPERTENSION
     Route: 048
     Dates: start: 20120907, end: 20130721

REACTIONS (1)
  - Cerebral haemorrhage [Unknown]
